FAERS Safety Report 18234654 (Version 8)
Quarter: 2024Q3

REPORT INFORMATION
  Report Type: Spontaneous
  Country: US (occurrence: US)
  Receive Date: 20200904
  Receipt Date: 20240802
  Transmission Date: 20241016
  Serious: Yes (Other)
  Sender: PFIZER
  Company Number: US-PFIZER INC-2020341633

PATIENT
  Age: 79 Year
  Sex: Female
  Weight: 75.75 kg

DRUGS (2)
  1. IBRANCE [Suspect]
     Active Substance: PALBOCICLIB
     Indication: Breast cancer metastatic
     Dosage: 100 MG, DAILY (21 DAYS THEN OFF X 7 DAYS)
     Route: 048
     Dates: start: 20200114
  2. IBRANCE [Suspect]
     Active Substance: PALBOCICLIB
     Dosage: TAKE 75 MG BY MOUTH DAILY. DAYS 1-21 EVERY 28 DAYS
     Route: 048

REACTIONS (4)
  - Neutropenia [Unknown]
  - Gastrooesophageal reflux disease [Unknown]
  - Neoplasm progression [Unknown]
  - Arthralgia [Unknown]

NARRATIVE: CASE EVENT DATE: 20200101
